FAERS Safety Report 5431419-8 (Version None)
Quarter: 2007Q3

REPORT INFORMATION
  Report Type: 
  Country: None (occurrence: None)
  Receive Date: 20070830
  Receipt Date: 20070620
  Transmission Date: 20080115
  Serious: Yes (Other)
  Sender: FDA-Public Use
  Company Number: A0654333A

PATIENT
  Sex: Male

DRUGS (3)
  1. WELLBUTRIN XL [Suspect]
     Dosage: 300MG PER DAY
     Route: 048
  2. ZOLOFT [Concomitant]
  3. BENICAR [Concomitant]

REACTIONS (8)
  - CRYING [None]
  - DRUG INEFFECTIVE [None]
  - FALL [None]
  - HYPOTENSION [None]
  - LOSS OF CONSCIOUSNESS [None]
  - SLEEP DISORDER [None]
  - SUICIDAL IDEATION [None]
  - SYNCOPE [None]
